FAERS Safety Report 5103398-4 (Version None)
Quarter: 2006Q3

REPORT INFORMATION
  Report Type: 
  Country: None (occurrence: None)
  Receive Date: 20060908
  Receipt Date: 20060823
  Transmission Date: 20061208
  Serious: Yes (Hospitalization)
  Sender: FDA-Public Use
  Company Number: 2006SP000064

PATIENT
  Age: 41 Year
  Sex: Male
  Weight: 93.441 kg

DRUGS (6)
  1. PEG-INTRON [Suspect]
     Indication: HEPATITIS C
     Dosage: SC
     Route: 058
     Dates: start: 20050522, end: 20060430
  2. RIBAVIRIN [Suspect]
     Indication: HEPATITIS C
     Dosage: PO
     Route: 048
     Dates: start: 20050522, end: 20060430
  3. KLONOPIN [Concomitant]
  4. PROTONIX [Concomitant]
  5. TRILEPTAL [Concomitant]
  6. SEROQUEL [Concomitant]

REACTIONS (15)
  - ANGER [None]
  - BLOOD SODIUM DECREASED [None]
  - CONSTIPATION [None]
  - DRUG INEFFECTIVE [None]
  - HAEMATOCHEZIA [None]
  - HYPOMAGNESAEMIA [None]
  - MALAISE [None]
  - MEMORY IMPAIRMENT [None]
  - PYREXIA [None]
  - RECTAL HAEMORRHAGE [None]
  - RED BLOOD CELL COUNT DECREASED [None]
  - THERAPY NON-RESPONDER [None]
  - TREATMENT NONCOMPLIANCE [None]
  - WEIGHT DECREASED [None]
  - WHITE BLOOD CELL COUNT DECREASED [None]
